FAERS Safety Report 13513954 (Version 2)
Quarter: 2017Q2

REPORT INFORMATION
  Report Type: Spontaneous
  Country: JP (occurrence: JP)
  Receive Date: 20170504
  Receipt Date: 20170530
  Transmission Date: 20170830
  Serious: Yes (Other)
  Sender: FDA-Public Use
  Company Number: JP-JNJFOC-20170501788

PATIENT
  Age: 74 Year
  Sex: Male
  Weight: 48 kg

DRUGS (10)
  1. BISOPROLOL [Concomitant]
     Active Substance: BISOPROLOL
     Route: 048
     Dates: start: 20170217
  2. VERAPAMIL HYDROCHLORIDE. [Concomitant]
     Active Substance: VERAPAMIL HYDROCHLORIDE
     Route: 048
     Dates: start: 20170217
  3. LUPRAC [Concomitant]
     Active Substance: TORSEMIDE
     Route: 048
     Dates: start: 20170201, end: 20170215
  4. LUPRAC [Concomitant]
     Active Substance: TORSEMIDE
     Route: 048
     Dates: start: 20170223
  5. VERAPAMIL HYDROCHLORIDE. [Concomitant]
     Active Substance: VERAPAMIL HYDROCHLORIDE
     Route: 042
     Dates: start: 20170201
  6. VERAPAMIL HYDROCHLORIDE. [Concomitant]
     Active Substance: VERAPAMIL HYDROCHLORIDE
     Route: 048
     Dates: start: 20170207, end: 20170216
  7. VERAPAMIL HYDROCHLORIDE. [Concomitant]
     Active Substance: VERAPAMIL HYDROCHLORIDE
     Route: 048
     Dates: start: 20170201, end: 20170206
  8. XARELTO [Suspect]
     Active Substance: RIVAROXABAN
     Indication: ATRIAL FIBRILLATION
     Route: 048
     Dates: start: 20170201, end: 20170216
  9. ALESION [Suspect]
     Active Substance: EPINASTINE HYDROCHLORIDE
     Indication: RASH PRURITIC
     Route: 048
     Dates: start: 20170215, end: 20170216
  10. BISOPROLOL [Concomitant]
     Active Substance: BISOPROLOL
     Route: 048
     Dates: start: 20170213, end: 20170216

REACTIONS (4)
  - Rash pruritic [Recovering/Resolving]
  - Renal impairment [Unknown]
  - Oedema peripheral [Recovered/Resolved]
  - Brain natriuretic peptide increased [Recovering/Resolving]

NARRATIVE: CASE EVENT DATE: 20170215
